FAERS Safety Report 9659147 (Version 1)
Quarter: 2013Q4

REPORT INFORMATION
  Report Type: Spontaneous
  Country: US (occurrence: US)
  Receive Date: 20131031
  Receipt Date: 20131031
  Transmission Date: 20140711
  Serious: Yes (Other)
  Sender: FDA-Public Use
  Company Number: PHHY2013US118846

PATIENT
  Age: 51 Year
  Sex: Female
  Weight: 60 kg

DRUGS (5)
  1. CO-DIOVAN [Suspect]
     Indication: HYPERTENSION
  2. PROPOFOL [Interacting]
     Dosage: 150 MG, UNK
  3. FENTANYL [Interacting]
     Dosage: 100 UG, UNK
  4. ROCURONIUM BROMIDE [Interacting]
     Dosage: 60 MG, UNK
  5. SEVOFLURANE [Interacting]

REACTIONS (3)
  - Drug interaction [Unknown]
  - Hypotension [Recovering/Resolving]
  - Heart rate abnormal [Unknown]
